FAERS Safety Report 7344970-0 (Version None)
Quarter: 2011Q1

REPORT INFORMATION
  Report Type: 
  Country: None (occurrence: None)
  Receive Date: 20110310
  Receipt Date: 20101007
  Transmission Date: 20110831
  Serious: Yes (Hospitalization)
  Sender: FDA-Public Use
  Company Number: A0886918A

PATIENT
  Age: 61 Year
  Sex: Female

DRUGS (1)
  1. AVANDIA [Suspect]
     Dosage: 8MG PER DAY
     Route: 048

REACTIONS (5)
  - CHOLECYSTECTOMY [None]
  - CHEST PAIN [None]
  - WRIST FRACTURE [None]
  - PAIN [None]
  - CHEST DISCOMFORT [None]
